FAERS Safety Report 22832270 (Version 2)
Quarter: 2024Q1

REPORT INFORMATION
  Report Type: Spontaneous
  Country: CN (occurrence: CN)
  Receive Date: 20230817
  Receipt Date: 20240229
  Transmission Date: 20240410
  Serious: Yes (Hospitalization)
  Sender: FDA-Public Use
  Company Number: CN-PFIZER INC-PV202300138654

PATIENT
  Age: 63 Year
  Sex: Male

DRUGS (2)
  1. CEFOPERAZONE SODIUM [Interacting]
     Active Substance: CEFOPERAZONE SODIUM
     Indication: Bronchitis
     Dosage: 2 G
     Route: 042
  2. DEXTROSE [Concomitant]
     Active Substance: DEXTROSE\DEXTROSE MONOHYDRATE
     Dosage: 100 ML

REACTIONS (2)
  - Alcohol intolerance [Recovered/Resolved]
  - Labelled drug-food interaction medication error [Unknown]
